FAERS Safety Report 20808159 (Version 1)
Quarter: 2022Q2

REPORT INFORMATION
  Report Type: Report from Study
  Country: BE (occurrence: BE)
  Receive Date: 20220510
  Receipt Date: 20220510
  Transmission Date: 20220720
  Serious: Yes (Death)
  Sender: FDA-Public Use
  Company Number: BE-Symogen - AB-202000015

PATIENT

DRUGS (5)
  1. LEUKINE [Suspect]
     Active Substance: SARGRAMOSTIM
     Indication: Respiratory failure
     Dosage: 125 MCG TWICE DAILY VIA INHALATION
     Route: 055
     Dates: start: 20200428, end: 20200502
  2. LEUKINE [Suspect]
     Active Substance: SARGRAMOSTIM
     Indication: Respiratory failure
     Dosage: 125 MCG/M2 BODY SURFACE INTRAVENOUS
     Route: 042
     Dates: start: 20200502, end: 20200502
  3. ACETAMINOPHEN [Concomitant]
     Active Substance: ACETAMINOPHEN
     Indication: Pain
     Route: 048
     Dates: start: 20200427, end: 20200503
  4. ACETAMINOPHEN [Concomitant]
     Active Substance: ACETAMINOPHEN
     Indication: Pain
     Route: 042
     Dates: start: 20200427, end: 20200503
  5. FENTANYL [Concomitant]
     Active Substance: FENTANYL
     Indication: Plasma cell myeloma
     Route: 062
     Dates: end: 20200503

REACTIONS (1)
  - Respiratory distress [Fatal]

NARRATIVE: CASE EVENT DATE: 20200502
